FAERS Safety Report 5327839-2 (Version None)
Quarter: 2007Q2

REPORT INFORMATION
  Report Type: 
  Country: None (occurrence: None)
  Receive Date: 20070517
  Receipt Date: 20070511
  Transmission Date: 20071010
  Serious: Yes (Life-Threatening)
  Sender: FDA-Public Use
  Company Number: JP-ASTRAZENECA-2007AP02490

PATIENT
  Age: 8 Year
  Sex: Female
  Weight: 28 kg

DRUGS (13)
  1. MEROPEN [Suspect]
     Indication: SPLENIC ABSCESS
     Route: 041
     Dates: start: 20070131, end: 20070219
  2. DALACIN S [Suspect]
     Indication: SPLENIC ABSCESS
     Route: 041
     Dates: start: 20070201, end: 20070215
  3. THEO-DUR [Suspect]
     Indication: ASTHMA
     Route: 048
     Dates: start: 20070212, end: 20070219
  4. ONON DRYSYRUP [Suspect]
     Indication: ASTHMA
     Route: 048
     Dates: start: 20070203, end: 20070219
  5. FLUMARIN [Concomitant]
     Indication: SPLENIC ABSCESS
     Route: 042
     Dates: start: 20070130, end: 20070131
  6. CELTECT [Concomitant]
     Indication: URTICARIA
     Route: 048
     Dates: start: 20070131, end: 20070209
  7. ASVERIN [Concomitant]
     Indication: ASTHMA
     Route: 048
     Dates: start: 20070202, end: 20070206
  8. MUCODYNE [Concomitant]
     Indication: ASTHMA
     Route: 048
     Dates: start: 20070202, end: 20070206
  9. DORMICUM [Concomitant]
     Indication: ANAESTHESIA
     Route: 065
     Dates: start: 20070202, end: 20070202
  10. KETARAL [Concomitant]
     Indication: ANAESTHESIA
     Route: 042
     Dates: start: 20070202, end: 20070202
  11. MEPTIN [Concomitant]
     Indication: ASTHMA
     Route: 048
     Dates: start: 20070203, end: 20070206
  12. NEOPHYLLIN [Concomitant]
     Indication: ASTHMA
     Route: 041
     Dates: start: 20070203, end: 20070212
  13. SOLU-CORTEF [Concomitant]
     Indication: ASTHMA
     Route: 042
     Dates: start: 20070203, end: 20070203

REACTIONS (1)
  - HISTIOCYTOSIS HAEMATOPHAGIC [None]
